FAERS Safety Report 6774382-X (Version None)
Quarter: 2010Q2

REPORT INFORMATION
  Report Type: 
  Country: None (occurrence: None)
  Receive Date: 20100617
  Receipt Date: 20100608
  Transmission Date: 20101027
  Serious: Yes (Hospitalization)
  Sender: FDA-Public Use
  Company Number: IT-ASTRAZENECA-2010SE26708

PATIENT
  Age: 25636 Day
  Sex: Female

DRUGS (6)
  1. ANTRA [Suspect]
     Route: 048
     Dates: start: 20070605, end: 20100605
  2. VALEANS [Suspect]
     Route: 048
     Dates: start: 20100503, end: 20100607
  3. OXYCONTIN [Suspect]
     Indication: PAIN
     Route: 048
     Dates: start: 20090605, end: 20100605
  4. KARVEZIDE [Concomitant]
     Indication: HYPERTENSION
     Dosage: 300/12 MG DAILY
     Route: 048
     Dates: start: 20000508, end: 20100508
  5. LYRICA [Concomitant]
     Indication: PAIN
     Route: 048
     Dates: start: 20000508, end: 20100508
  6. LAMICTAL [Concomitant]
     Route: 048
     Dates: start: 20091201, end: 20100601

REACTIONS (6)
  - ASTHENIA [None]
  - ATAXIA [None]
  - DIZZINESS [None]
  - HYPOKINESIA [None]
  - LETHARGY [None]
  - RESPIRATORY DEPRESSION [None]
